FAERS Safety Report 11794686 (Version 3)
Quarter: 2016Q1

REPORT INFORMATION
  Report Type: Spontaneous
  Country: BR (occurrence: BR)
  Receive Date: 20151202
  Receipt Date: 20160329
  Transmission Date: 20160525
  Serious: Yes (Other)
  Sender: FDA-Public Use
  Company Number: BR-PFIZER INC-2015400390

PATIENT
  Sex: Female

DRUGS (3)
  1. LYRICA [Suspect]
     Active Substance: PREGABALIN
     Dosage: UNK
     Route: 048
     Dates: start: 20151106
  2. DORFLEX [Suspect]
     Active Substance: CAFFEINE\DIPYRONE\ORPHENADRINE
     Indication: HEADACHE
     Dosage: UNK
     Route: 048
     Dates: start: 201511
  3. LYRICA [Suspect]
     Active Substance: PREGABALIN
     Dosage: 40 MG, ONE AT NIGHT
     Route: 048

REACTIONS (7)
  - Cardiovascular insufficiency [Unknown]
  - Cardiac disorder [Unknown]
  - Tachycardia [Unknown]
  - Emotional distress [Unknown]
  - Feeling hot [Unknown]
  - Feeling abnormal [Unknown]
  - Flatulence [Unknown]

NARRATIVE: CASE EVENT DATE: 20151117
